FAERS Safety Report 11896294 (Version 1)
Quarter: 2016Q1

REPORT INFORMATION
  Report Type: Spontaneous
  Country: US (occurrence: US)
  Receive Date: 20160107
  Receipt Date: 20160107
  Transmission Date: 20160526
  Serious: Yes (Other)
  Sender: FDA-Public Use
  Company Number: US-ROCHE-1540460

PATIENT
  Sex: Male

DRUGS (7)
  1. RITUXIMAB [Suspect]
     Active Substance: RITUXIMAB
     Indication: CHRONIC LYMPHOCYTIC LEUKAEMIA
     Route: 065
  2. B-12 ACTIVE [Concomitant]
     Route: 065
     Dates: start: 20140331
  3. INLYTA [Concomitant]
     Active Substance: AXITINIB
     Route: 065
     Dates: start: 20150123
  4. TRIAMCINOLONE [Concomitant]
     Active Substance: TRIAMCINOLONE
     Route: 065
  5. IBRUTINIB [Suspect]
     Active Substance: IBRUTINIB
     Indication: PRODUCT USED FOR UNKNOWN INDICATION
     Route: 065
  6. JANUVIA [Concomitant]
     Active Substance: SITAGLIPTIN PHOSPHATE
     Route: 065
  7. GABAPENTIN. [Concomitant]
     Active Substance: GABAPENTIN
     Route: 048

REACTIONS (7)
  - Erythema [Unknown]
  - Platelet count decreased [Unknown]
  - Pyrexia [Unknown]
  - Productive cough [Unknown]
  - Lymphadenopathy [Unknown]
  - Neuralgia [Unknown]
  - Pancytopenia [Unknown]
